FAERS Safety Report 24418770 (Version 1)
Quarter: 2024Q4

REPORT INFORMATION
  Report Type: Spontaneous
  Country: PT (occurrence: PT)
  Receive Date: 20241009
  Receipt Date: 20241009
  Transmission Date: 20250115
  Serious: Yes (Other)
  Sender: MERCK
  Company Number: PT-009507513-2410PRT002211

PATIENT
  Age: 65 Year
  Sex: Female

DRUGS (3)
  1. PEMBROLIZUMAB [Suspect]
     Active Substance: PEMBROLIZUMAB
     Indication: Rectal neoplasm
     Dosage: 200 MG, Q3W
     Dates: start: 202008, end: 2021
  2. PEMBROLIZUMAB [Suspect]
     Active Substance: PEMBROLIZUMAB
     Indication: Microsatellite instability cancer
     Dosage: 200 MG, Q3W
     Dates: start: 2022, end: 202211
  3. PEMBROLIZUMAB [Suspect]
     Active Substance: PEMBROLIZUMAB
     Dosage: 200 MG, Q3W
     Dates: start: 202301, end: 202403

REACTIONS (10)
  - Intestinal operation [Unknown]
  - Breast cancer recurrent [Unknown]
  - Immune-mediated nephritis [Unknown]
  - Therapy partial responder [Unknown]
  - Renal colic [Recovered/Resolved]
  - Wound dehiscence [Unknown]
  - Postoperative wound infection [Unknown]
  - Renal impairment [Unknown]
  - Blood creatinine abnormal [Unknown]
  - Off label use [Unknown]

NARRATIVE: CASE EVENT DATE: 20200801
